FAERS Safety Report 13696225 (Version 2)
Quarter: 2017Q3

REPORT INFORMATION
  Report Type: Report from Study
  Country: None (occurrence: AU)
  Receive Date: 20170628
  Receipt Date: 20170725
  Transmission Date: 20171127
  Serious: Yes (Hospitalization, Other)
  Sender: FDA-Public Use
  Company Number: AU-ABBVIE-17P-008-1876484-00

PATIENT
  Age: 29 Year
  Sex: Female

DRUGS (1)
  1. HUMIRA [Suspect]
     Active Substance: ADALIMUMAB
     Indication: HIDRADENITIS
     Dosage: INDUCTION DOSE
     Route: 058
     Dates: start: 20170207, end: 20170207

REACTIONS (11)
  - Injection site erythema [Recovered/Resolved]
  - Serum sickness [Unknown]
  - Injection site induration [Recovered/Resolved]
  - Seizure [Recovered/Resolved]
  - Injection site pruritus [Recovered/Resolved]
  - Asthenia [Recovered/Resolved]
  - Injection site rash [Recovered/Resolved]
  - Arthralgia [Unknown]
  - Syncope [Recovered/Resolved]
  - Pyrexia [Unknown]
  - Pain [Recovered/Resolved]

NARRATIVE: CASE EVENT DATE: 2017
